FAERS Safety Report 22926017 (Version 2)
Quarter: 2024Q3

REPORT INFORMATION
  Report Type: Report from Study
  Country: EG (occurrence: EG)
  Receive Date: 20230909
  Receipt Date: 20240926
  Transmission Date: 20241016
  Serious: Yes (Other)
  Sender: NOVARTIS
  Company Number: EG-002147023-NVSC2023EG193089

PATIENT
  Age: 69 Year
  Sex: Male

DRUGS (12)
  1. LEQVIO [Suspect]
     Active Substance: INCLISIRAN SODIUM
     Indication: Hypercholesterolaemia
     Dosage: 284 MG, (ONE DOSE INITIALLY, SECOND DOSE AFTER 3 MONTHS ,THE THIRD DOSE WAS 3 MONTHS AFTER THE SECON
     Route: 058
     Dates: start: 20220912, end: 20221212
  2. NEBIVOLOL HYDROCHLORIDE [Concomitant]
     Active Substance: NEBIVOLOL HYDROCHLORIDE
     Indication: Heart rate irregular
     Dosage: UNK, QD, (ONE YEAR AGO (THE REPORTER COULDN^T  REMEMBER THE EXACT DATE)/ ONGOING)
     Route: 048
  3. BISOPROLOL FUMARATE [Concomitant]
     Active Substance: BISOPROLOL FUMARATE
     Indication: Heart rate irregular
     Dosage: UNK UNK, QD, (2000 (THE REPORTER COULDN?T REMEMBER THE EXACT DATE) /  STOPPED ONE YEAR AGO (THE REPO
     Route: 048
  4. ISOMACK [Concomitant]
     Indication: Hypertension
     Dosage: UNK, QD, (2001-2002 (THE REPORTER COULDN?T REMEMBER THE EXACT DATE)/ ONGOING)
     Route: 048
  5. PLAVIX [Concomitant]
     Active Substance: CLOPIDOGREL BISULFATE
     Indication: Anticoagulant therapy
     Dosage: UNK, QD, (2000 (THE REPORTER COULDN?T REMEMBER THE EXACT DATE) / ONGOING)
     Route: 048
  6. JUSPRIN [Concomitant]
     Indication: Anticoagulant therapy
     Dosage: UNK, QD, ( 2000 (THE REPORTER COULDN?T REMEMBER THE EXACT DATE) / ONGOING)
     Route: 048
  7. VASTRIL [Concomitant]
     Indication: Oxygen therapy
     Dosage: UNK, BID
     Route: 048
  8. VASTRIL [Concomitant]
     Dosage: UNK, QD, (2000 (THE REPORTER COULDN?T REMEMBER THE EXACT DATE) / ONGOING)
     Route: 065
  9. ISORDIL [Concomitant]
     Active Substance: ISOSORBIDE DINITRATE
     Indication: Lipids abnormal
     Dosage: UNK UNK, QD, ( 2000 (THE REPORTER COULDN?T REMEMBER THE EXACT DATE) / STOPPED THREE YEARS AGO)
     Route: 048
  10. CHOLEROSE [Concomitant]
     Indication: Hypercholesterolaemia
     Dosage: UNK UNK, QD10 YEARS AGO (THE REPORTER COULDN?T REMEMBER THE EXACT  DATE) /ONGOING
     Route: 048
  11. NITRODERM [Concomitant]
     Active Substance: NITROGLYCERIN
     Indication: Dyspepsia
     Dosage: UNK, PRN, (2000 (THE REPORTER COULDN?T REMEMBER THE EXACT DATE) / ONGOING)
     Route: 065
  12. NITRODERM [Concomitant]
     Active Substance: NITROGLYCERIN
     Indication: Angina pectoris

REACTIONS (11)
  - Myocardial infarction [Recovering/Resolving]
  - Fatigue [Recovering/Resolving]
  - Chest pain [Recovering/Resolving]
  - Coronary artery occlusion [Recovering/Resolving]
  - Blood creatinine increased [Recovered/Resolved]
  - Lipids increased [Not Recovered/Not Resolved]
  - Gout [Recovering/Resolving]
  - Feeling abnormal [Unknown]
  - Product dose omission in error [Unknown]
  - Inappropriate schedule of product administration [Unknown]
  - Off label use [Unknown]

NARRATIVE: CASE EVENT DATE: 20230601
